FAERS Safety Report 9597412 (Version 1)
Quarter: 2013Q4

REPORT INFORMATION
  Report Type: Spontaneous
  Country: US (occurrence: US)
  Receive Date: 20131004
  Receipt Date: 20131004
  Transmission Date: 20140711
  Serious: No
  Sender: FDA-Public Use
  Company Number: US-AMGEN-USASP2013018768

PATIENT
  Age: 56 Year
  Sex: Female
  Weight: 97.51 kg

DRUGS (10)
  1. ENBREL [Suspect]
     Indication: RHEUMATOID ARTHRITIS
     Dosage: 25 MG, 2 TIMES/WK
     Route: 058
     Dates: start: 201210, end: 201212
  2. PLAQUENIL                          /00072602/ [Concomitant]
     Dosage: 200 MG, UNK
  3. ARAVA [Concomitant]
     Dosage: 20 MG, UNK
  4. MAXZIDE [Concomitant]
     Dosage: UNK
  5. MICRO-K [Concomitant]
     Dosage: 10 MEQ, UNK
  6. PREDNISONE [Concomitant]
     Dosage: 1 MG, UNK
  7. VITAMIN D3 [Concomitant]
     Dosage: 10000 UNIT, UNK
  8. COMBIVENT [Concomitant]
     Dosage: UNK
  9. ADVAIR HFA [Concomitant]
     Dosage: UNK, 115/21
  10. ALBUTEROL                          /00139501/ [Concomitant]
     Dosage: 0.083 %, UNK

REACTIONS (2)
  - Injection site urticaria [Unknown]
  - Injection site inflammation [Unknown]
